FAERS Safety Report 26219193 (Version 1)
Quarter: 2025Q4

REPORT INFORMATION
  Report Type: Spontaneous
  Country: EU (occurrence: EU)
  Receive Date: 20251231
  Receipt Date: 20251231
  Transmission Date: 20260117
  Serious: Yes (Hospitalization)
  Sender: JAZZ
  Company Number: None

PATIENT
  Age: 60 Year
  Weight: 82 kg

DRUGS (6)
  1. EPIDIOLEX [Interacting]
     Active Substance: CANNABIDIOL
     Indication: Axial spondyloarthritis
     Dosage: 1 DOSAGE FORM, AS NECESSARY
  2. LETROZOLE [Suspect]
     Active Substance: LETROZOLE
     Indication: Breast cancer
     Dosage: 1 DOSAGE FORM, QD
  3. ABEMACICLIB [Interacting]
     Active Substance: ABEMACICLIB
     Indication: Breast cancer
     Dosage: 1 DOSAGE FORM, BID
  4. RYTHMODAN [DISOPYRAMIDE] [Concomitant]
     Indication: Supraventricular extrasystoles
     Dosage: 10 MILLIGRAM, BID
  5. LEVOTHYROXINE [Concomitant]
     Active Substance: LEVOTHYROXINE
     Indication: Hypothyroidism
     Dosage: 112.5 MICROGRAM, QD
  6. ACETAMINOPHEN [Concomitant]
     Active Substance: ACETAMINOPHEN
     Indication: Axial spondyloarthritis
     Dosage: 1 GRAM

REACTIONS (3)
  - Pulmonary embolism [Recovering/Resolving]
  - Embolism venous [Recovering/Resolving]
  - Drug interaction [Recovered/Resolved]

NARRATIVE: CASE EVENT DATE: 20250101
